FAERS Safety Report 26206304 (Version 2)
Quarter: 2025Q4

REPORT INFORMATION
  Report Type: Spontaneous
  Country: EU (occurrence: EU)
  Receive Date: 20251229
  Receipt Date: 20251230
  Transmission Date: 20260118
  Serious: Yes (Other)
  Sender: SANOFI AVENTIS
  Company Number: EU-DialogSolutions-SAAVPROD-PI859893-C1

PATIENT
  Age: 95 Year
  Sex: Female

DRUGS (8)
  1. ZOLPIDEM TARTRATE [Suspect]
     Active Substance: ZOLPIDEM TARTRATE
     Indication: Insomnia
     Dosage: UNK (LONG-TERM USE)
  2. AMLODIPINE [Concomitant]
     Active Substance: AMLODIPINE BESYLATE
     Dosage: UNK
  3. PERINDOPRIL [Concomitant]
     Active Substance: PERINDOPRIL
     Dosage: UNK
  4. NEBIVOLOL [Concomitant]
     Active Substance: NEBIVOLOL
     Dosage: UNK
  5. GLICLAZIDE [Concomitant]
     Active Substance: GLICLAZIDE
     Dosage: UNK
  6. METFORMIN [Concomitant]
     Active Substance: METFORMIN HYDROCHLORIDE
     Dosage: UNK
  7. ALLOPURINOL [Concomitant]
     Active Substance: ALLOPURINOL
     Dosage: UNK
  8. ROSUVASTATIN [Concomitant]
     Active Substance: ROSUVASTATIN
     Dosage: UNK

REACTIONS (11)
  - Dermatitis artefacta [Recovered/Resolved]
  - Alopecia scarring [Recovered/Resolved]
  - Skin lesion [Recovered/Resolved]
  - Diffuse alopecia [Recovered/Resolved]
  - Skin ulcer [Recovered/Resolved]
  - Skin erosion [Recovered/Resolved]
  - Scab [Recovered/Resolved]
  - Skin fibrosis [Recovered/Resolved]
  - Intentional self-injury [Recovered/Resolved]
  - Sleep disorder [Recovered/Resolved]
  - Amnesia [Recovered/Resolved]
